FAERS Safety Report 20098821 (Version 1)
Quarter: 2021Q4

REPORT INFORMATION
  Report Type: Spontaneous
  Country: US (occurrence: None)
  Receive Date: 20211119
  Receipt Date: 20211119
  Transmission Date: 20220303
  Serious: No
  Sender: FDA-Public Use
  Company Number: None

PATIENT

DRUGS (2)
  1. SYNTHROID [Suspect]
     Active Substance: LEVOTHYROXINE SODIUM
     Route: 048
  2. PHENYTOIN [Suspect]
     Active Substance: PHENYTOIN
     Route: 048

REACTIONS (4)
  - Product dispensing error [None]
  - Wrong product administered [None]
  - Seizure [None]
  - Product communication issue [None]
